FAERS Safety Report 23151972 (Version 1)
Quarter: 2023Q4

REPORT INFORMATION
  Report Type: Report from Study
  Country: US (occurrence: US)
  Receive Date: 20231107
  Receipt Date: 20231107
  Transmission Date: 20240110
  Serious: Yes (Other)
  Sender: FDA-Public Use
  Company Number: US-ABBVIE-5479980

PATIENT
  Sex: Female

DRUGS (1)
  1. RINVOQ [Suspect]
     Active Substance: UPADACITINIB
     Indication: Rheumatoid arthritis
     Route: 048
     Dates: start: 20220309

REACTIONS (4)
  - Loss of consciousness [Unknown]
  - Orthostatic hypotension [Unknown]
  - Sjogren^s syndrome [Unknown]
  - Autonomic neuropathy [Unknown]

NARRATIVE: CASE EVENT DATE: 20220101
